FAERS Safety Report 19394868 (Version 1)
Quarter: 2021Q2

REPORT INFORMATION
  Report Type: Spontaneous
  Country: US (occurrence: US)
  Receive Date: 20210609
  Receipt Date: 20210609
  Transmission Date: 20210717
  Serious: No
  Sender: FDA-Public Use
  Company Number: US-TOPROL-2021000108

PATIENT
  Age: 73 Year
  Sex: Female

DRUGS (33)
  1. LYRICA [Concomitant]
     Active Substance: PREGABALIN
     Route: 065
     Dates: start: 201211
  2. SENIOR WOMEN^S MULTIPLE VITAMIN [Concomitant]
     Route: 065
  3. VITAMIN D3 [Concomitant]
     Active Substance: CHOLECALCIFEROL
     Dosage: DECREASED AND NOW INCREASED DOSE AFTER LAST TABS
     Route: 065
     Dates: start: 20140301
  4. ROSUVASTATIN. [Concomitant]
     Active Substance: ROSUVASTATIN
     Dosage: ONCE DAILY EVENING
     Route: 065
     Dates: start: 2018
  5. CALCIUM, MAGNESIUM AND ZINC [Concomitant]
     Route: 065
     Dates: start: 1990
  6. CETIRIZINE [Concomitant]
     Active Substance: CETIRIZINE HYDROCHLORIDE
     Dosage: 1 DAILY Q AM WITH ADDITION OF MONTELUKAST, OR TWICE DAILY IF NEEDED
     Route: 065
     Dates: start: 2002
  7. MONTELUKAST [Concomitant]
     Active Substance: MONTELUKAST SODIUM
     Dosage: ONCE DAILY PM
     Route: 065
  8. SAW PALMETTO [Concomitant]
     Active Substance: HERBALS\SAW PALMETTO
     Route: 065
     Dates: start: 2020
  9. PANTOPRAZOLE [Concomitant]
     Active Substance: PANTOPRAZOLE
     Dosage: DOSAGE INCREASED ON 01?DEC?2020
     Route: 065
     Dates: start: 20201023
  10. METOPROLOL. [Suspect]
     Active Substance: METOPROLOL
     Route: 065
  11. CLOPADOGREL [Concomitant]
     Dosage: DAILY AM, TAKE WITH ASA
     Route: 065
     Dates: start: 20201006
  12. FISH OIL [Concomitant]
     Active Substance: FISH OIL
     Route: 065
     Dates: start: 1988
  13. MONTELUKAST [Concomitant]
     Active Substance: MONTELUKAST SODIUM
     Dosage: AT BEDTIME
     Route: 065
     Dates: start: 2018
  14. NITROGLYCERIN. [Concomitant]
     Active Substance: NITROGLYCERIN
     Dosage: AS DIRECTED, ONE TABLET SUBLINGUALLY, EVERY 5 MINUTES. IF NO RELIF AFTER 2, TAKE 3RD AND CALL 911
     Route: 065
     Dates: start: 20201007
  15. GABAPENTIN. [Concomitant]
     Active Substance: GABAPENTIN
     Dosage: AS NEEDED
     Dates: start: 20201123
  16. ONDANSETRON MELTAWAY TABLETS [Concomitant]
     Dosage: AS NEEDED
     Route: 065
  17. CALCIUM CARBONATE ANTACID [Concomitant]
     Dosage: 2 AS NEEDED
     Route: 065
     Dates: start: 20201006
  18. TETRACYCLINE [Concomitant]
     Active Substance: TETRACYCLINE
     Dosage: AVOID IF POSSIBLE
  19. BISOPROLOL [Concomitant]
     Active Substance: BISOPROLOL
     Dosage: FREQUENCY: Q PM
     Route: 065
     Dates: start: 20201006
  20. ASA [Concomitant]
     Active Substance: ASPIRIN
     Dosage: ONCE EACH AM WITH CLOPIDOGREL
     Route: 065
     Dates: start: 1998
  21. KETACONAZOLE 2% [Concomitant]
     Dosage: AS DIRECTED
     Route: 065
  22. BIOTIN [Concomitant]
     Active Substance: BIOTIN
     Route: 065
     Dates: start: 202101
  23. CINNAMON. [Concomitant]
     Active Substance: CINNAMON
     Route: 065
  24. GLYCERIN SUPPOSITORY [Concomitant]
     Active Substance: GLYCERIN
     Dosage: OCCASIONAL
     Route: 054
     Dates: start: 2014
  25. GUAIFENISIN [Concomitant]
     Dosage: ONCE OR TWICE DAILY, AS NEEDED, EXTENDED RELEASE IF AVAILABLE
     Route: 065
     Dates: start: 2007
  26. VITAMIN B COMPLEX [Concomitant]
     Active Substance: CYANOCOBALAMIN\DEXPANTHENOL\NIACINAMIDE\PYRIDOXINE HYDROCHLORIDE\RIBOFLAVIN 5^-PHOSPHATE SODIUM\THIAMINE HYDROCHLORIDE\VITAMIN B COMPLEX
     Dosage: AT BEDTIME
     Dates: start: 2012
  27. COENZYME Q10 [Concomitant]
     Active Substance: DIETARY SUPPLEMENT\UBIDECARENONE
     Dosage: PREVIOUSLY TAKEN WITH AREDS
     Route: 065
     Dates: start: 2016
  28. AREDS (MACULAR HEALTH) [Suspect]
     Active Substance: MINERALS\VITAMINS
     Dosage: ON HOLD DUE TO RESOLUTION OF SIGNS OF AMD
     Route: 065
  29. CRANBERRY CONCENTRATE [Concomitant]
     Active Substance: CRANBERRY CONCENTRATE
     Dosage: 2 CAPSULES THREE TIMES DAILY
     Route: 065
     Dates: start: 2018
  30. MILK OF MAGNESIA [Concomitant]
     Active Substance: MAGNESIUM HYDROXIDE
     Dosage: AS DIRECTED
     Route: 065
     Dates: start: 20201023
  31. POTASSIUM CITRATE. [Concomitant]
     Active Substance: POTASSIUM CITRATE
     Dosage: 1 EVERY NIGHT
     Route: 065
     Dates: start: 2018
  32. METHACARBAMOL 500?750 MG [Concomitant]
     Dosage: AS NEEDED
  33. RIZOTRIPTAN [Concomitant]
     Dosage: AS NEEDED/ MAY REPEAT X1 AFTER 2 HOURS
     Route: 065
     Dates: start: 1989

REACTIONS (2)
  - Dyspnoea [Unknown]
  - Cardiac disorder [Unknown]
